FAERS Safety Report 12906842 (Version 1)
Quarter: 2016Q4

REPORT INFORMATION
  Report Type: Spontaneous
  Country: CO (occurrence: CO)
  Receive Date: 20161103
  Receipt Date: 20161103
  Transmission Date: 20170207
  Serious: Yes (Other)
  Sender: FDA-Public Use
  Company Number: CO-BAYER-2016-206606

PATIENT
  Sex: Female

DRUGS (1)
  1. JAYDESS [Suspect]
     Active Substance: LEVONORGESTREL
     Dosage: 14 MCG/24HR, CONT
     Route: 015
     Dates: start: 20151001

REACTIONS (5)
  - Abdominal pain lower [Unknown]
  - Peritoneal haemorrhage [Unknown]
  - Ectopic pregnancy with contraceptive device [Unknown]
  - Ruptured ectopic pregnancy [Unknown]
  - Drug ineffective [Unknown]
